FAERS Safety Report 9869223 (Version 1)
Quarter: 2014Q1

REPORT INFORMATION
  Report Type: Spontaneous
  Country: KR (occurrence: KR)
  Receive Date: 20140205
  Receipt Date: 20140205
  Transmission Date: 20141002
  Serious: Yes (Hospitalization, Other)
  Sender: FDA-Public Use
  Company Number: PHHY2014KR010871

PATIENT
  Age: 65 Year
  Sex: Female

DRUGS (5)
  1. SANDIMMUN NEORAL / OL [Suspect]
     Indication: RENAL TRANSPLANT
     Dosage: UNK UKN, UNK
     Route: 048
  2. ZYVOX [Interacting]
     Indication: INFLAMMATION
     Dosage: UNK UKN, UNK
     Route: 048
  3. ZITHROMAX [Concomitant]
     Route: 048
  4. AVELOX [Concomitant]
     Dosage: UNK UKN, UNK
     Route: 048
  5. CLARITHROMYCIN [Concomitant]
     Dosage: UNK UKN, UNK
     Route: 048

REACTIONS (11)
  - Pneumonia [Unknown]
  - Pneumonitis [Unknown]
  - Haematemesis [Unknown]
  - Inflammation [Unknown]
  - Platelet count decreased [Unknown]
  - Red blood cell count decreased [Unknown]
  - Oral herpes [Unknown]
  - Vomiting [Unknown]
  - Diarrhoea [Unknown]
  - Pathogen resistance [Unknown]
  - Drug interaction [Unknown]
